FAERS Safety Report 6038240-0 (Version None)
Quarter: 2009Q1

REPORT INFORMATION
  Report Type: 
  Country: None (occurrence: None)
  Receive Date: 20090114
  Receipt Date: 20090114
  Transmission Date: 20090719
  Serious: Yes (Hospitalization)
  Sender: FDA-Public Use
  Company Number: None

PATIENT
  Sex: Male
  Weight: 86.5 kg

DRUGS (1)
  1. TEMOZOLOMIDE [Suspect]
     Dosage: 2075 MG

REACTIONS (4)
  - ABDOMINAL PAIN [None]
  - CHOLECYSTITIS ACUTE [None]
  - NAUSEA [None]
  - PANCREATITIS [None]
